FAERS Safety Report 7094157-4 (Version None)
Quarter: 2010Q4

REPORT INFORMATION
  Report Type: 
  Country: None (occurrence: None)
  Receive Date: 20101110
  Receipt Date: 20101110
  Transmission Date: 20110411
  Serious: Yes (Other)
  Sender: FDA-Public Use
  Company Number: IT-PFIZER INC-2008156587

PATIENT
  Age: 59 Year
  Sex: Male

DRUGS (4)
  1. SUNITINIB MALATE [Suspect]
     Indication: METASTATIC RENAL CELL CARCINOMA
     Dosage: 50 MG DAILY FOR 4 WEEKS EVERY 6 WEEKS
     Route: 048
     Dates: start: 20060701
  2. SUNITINIB MALATE [Suspect]
     Dosage: 37.5 MG DAILY FOR 4 WEEKS EVERY 6 WEEKS
     Route: 048
     Dates: start: 20060101, end: 20070401
  3. SUNITINIB MALATE [Suspect]
     Dosage: UNK
     Route: 048
     Dates: start: 20071001, end: 20070101
  4. ZOLEDRONIC ACID [Suspect]
     Dosage: UNK
     Route: 042

REACTIONS (6)
  - FISTULA [None]
  - GASTROINTESTINAL DISORDER [None]
  - GINGIVAL DISORDER [None]
  - NAUSEA [None]
  - OSTEONECROSIS OF JAW [None]
  - TOOTH LOSS [None]
